FAERS Safety Report 9229110 (Version 2)
Quarter: 2013Q3

REPORT INFORMATION
  Report Type: Spontaneous
  Country: US (occurrence: US)
  Receive Date: 20130412
  Receipt Date: 20130715
  Transmission Date: 20140515
  Serious: No
  Sender: FDA-Public Use
  Company Number: US-ASTRAZENECA-2013SE22172

PATIENT
  Age: 23217 Day
  Sex: Male
  Weight: 117.9 kg

DRUGS (11)
  1. SYMBICORT [Suspect]
     Indication: ASTHMA
     Dosage: 160/4.5, TWO PUFFS BID
     Route: 055
  2. SYMBICORT [Suspect]
     Indication: ASTHMA
     Dosage: 160/4.5MCG BID
     Route: 055
     Dates: start: 2011, end: 201303
  3. SYMBICORT [Suspect]
     Indication: ASTHMA
     Dosage: 320MCG BID
     Route: 055
     Dates: start: 20130402
  4. RHINOCORT AQUA [Suspect]
     Route: 045
  5. AVAPRO [Concomitant]
     Indication: HYPERTENSION
  6. VERAPAMIL [Concomitant]
     Indication: HYPERTENSION
  7. HYDROCHLOROTHIAZIDE [Concomitant]
     Indication: HYPERTENSION
  8. NASOCORT SEASONAL [Concomitant]
  9. ASPIRIN [Concomitant]
  10. ZERTEC SEASONAL [Concomitant]
  11. TYLENOL [Concomitant]
     Indication: ARTHRALGIA

REACTIONS (4)
  - Dyspnoea [Recovering/Resolving]
  - Nasopharyngitis [Unknown]
  - Hypertension [Unknown]
  - Intentional drug misuse [Unknown]
